FAERS Safety Report 23144090 (Version 6)
Quarter: 2024Q2

REPORT INFORMATION
  Report Type: Report from Study
  Country: US (occurrence: US)
  Receive Date: 20231103
  Receipt Date: 20240415
  Transmission Date: 20240715
  Serious: No
  Sender: FDA-Public Use
  Company Number: US-BIOVITRUM-2023US01188

PATIENT
  Age: 55 Year
  Sex: Male

DRUGS (2)
  1. DOPTELET [Suspect]
     Active Substance: AVATROMBOPAG MALEATE
     Indication: Immune thrombocytopenia
     Dosage: ONCE DAILY
     Route: 048
     Dates: start: 202208
  2. DOPTELET [Suspect]
     Active Substance: AVATROMBOPAG MALEATE
     Dosage: 20 MG DAILY
     Route: 048
     Dates: start: 20221230

REACTIONS (14)
  - Gingival bleeding [Unknown]
  - Dizziness [Unknown]
  - Product dose omission issue [Unknown]
  - Pruritus [Unknown]
  - Depressed mood [Unknown]
  - Libido decreased [Unknown]
  - Hypersensitivity [Unknown]
  - Rash [Unknown]
  - Fluid retention [Unknown]
  - Stress [Unknown]
  - Drug hypersensitivity [Unknown]
  - Platelet count abnormal [Unknown]
  - Cough [Unknown]
  - Throat irritation [Unknown]
